FAERS Safety Report 7754648-7 (Version None)
Quarter: 2011Q3

REPORT INFORMATION
  Report Type: 
  Country: None (occurrence: None)
  Receive Date: 20110915
  Receipt Date: 20110720
  Transmission Date: 20111222
  Serious: No
  Sender: FDA-Public Use
  Company Number: US-ALLERGAN-1109803US

PATIENT
  Age: 68 Year
  Sex: Female

DRUGS (1)
  1. LUMIGAN [Suspect]
     Indication: GLAUCOMA
     Dosage: 2 GTT, QPM
     Route: 047

REACTIONS (3)
  - HEADACHE [None]
  - NECK PAIN [None]
  - MUSCULAR WEAKNESS [None]
